FAERS Safety Report 8485820-9 (Version None)
Quarter: 2012Q3

REPORT INFORMATION
  Report Type: 
  Country: None (occurrence: None)
  Receive Date: 20120703
  Receipt Date: 20120627
  Transmission Date: 20120928
  Serious: Yes (Other)
  Sender: FDA-Public Use
  Company Number: PHHY2012KR055295

PATIENT
  Age: 62 Year
  Sex: Male

DRUGS (5)
  1. OXALIPLATIN [Suspect]
     Dosage: DECREASED BY 20%
  2. FOLINIC ACID [Concomitant]
     Indication: BILE DUCT CANCER
  3. FLUOROURACIL [Concomitant]
     Indication: BILE DUCT CANCER
  4. OXALIPLATIN [Suspect]
     Dosage: 780 MG/M2
  5. OXALIPLATIN [Suspect]
     Indication: BILE DUCT CANCER
     Dosage: 02 HOUR INFUSION OF OXALIPLATIN 100MG/M2

REACTIONS (7)
  - GUILLAIN-BARRE SYNDROME [None]
  - NEUTROPENIA [None]
  - TENDON DISORDER [None]
  - MUSCULAR WEAKNESS [None]
  - DYSPHAGIA [None]
  - SENSORY DISTURBANCE [None]
  - URINARY RETENTION [None]
